FAERS Safety Report 12503577 (Version 1)
Quarter: 2016Q2

REPORT INFORMATION
  Report Type: Other
  Country: US (occurrence: US)
  Receive Date: 20160628
  Receipt Date: 20160628
  Transmission Date: 20160815
  Serious: Yes (Hospitalization)
  Sender: FDA-Public Use
  Company Number: US-ENDO PHARMACEUTICALS INC-2016-004109

PATIENT
  Age: 69 Year
  Sex: Female

DRUGS (3)
  1. PREDNISONE TABLETS [Suspect]
     Active Substance: PREDNISONE
     Dosage: INCREASED
     Route: 048
  2. PREDNISONE TABLETS [Suspect]
     Active Substance: PREDNISONE
     Indication: ASTHMA
     Route: 048
  3. PREDNISONE TABLETS [Suspect]
     Active Substance: PREDNISONE
     Route: 048

REACTIONS (2)
  - Pneumonitis [Unknown]
  - Secondary adrenocortical insufficiency [Unknown]
